FAERS Safety Report 6167184-9 (Version None)
Quarter: 2009Q2

REPORT INFORMATION
  Report Type: 
  Country: None (occurrence: None)
  Receive Date: 20090424
  Receipt Date: 20090414
  Transmission Date: 20091009
  Serious: Yes (Other)
  Sender: FDA-Public Use
  Company Number: FR-PFIZER INC-2009162779

PATIENT

DRUGS (4)
  1. NEURONTIN [Suspect]
     Dosage: 900 MG/DAY
  2. VANCOMYCIN [Concomitant]
     Dosage: UNK
  3. MERONEM [Concomitant]
     Dosage: UNK
  4. AMIKLIN [Concomitant]
     Indication: MENINGITIS
     Dosage: UNK

REACTIONS (1)
  - DRUG RASH WITH EOSINOPHILIA AND SYSTEMIC SYMPTOMS [None]
